FAERS Safety Report 12341567 (Version 2)
Quarter: 2016Q3

REPORT INFORMATION
  Report Type: Spontaneous
  Country: US (occurrence: US)
  Receive Date: 20160506
  Receipt Date: 20160725
  Transmission Date: 20161109
  Serious: Yes (Death, Hospitalization, Other)
  Sender: FDA-Public Use
  Company Number: US-PFIZER INC-2016245584

PATIENT
  Age: 40 Year
  Sex: Male

DRUGS (1)
  1. DEPO-TESTOSTERONE [Suspect]
     Active Substance: TESTOSTERONE CYPIONATE
     Indication: HORMONE REPLACEMENT THERAPY
     Dosage: UNK
     Dates: end: 20140301

REACTIONS (9)
  - Endocarditis [Fatal]
  - Cognitive disorder [Unknown]
  - Myocardial infarction [Unknown]
  - Impaired driving ability [Unknown]
  - Cerebrovascular accident [Fatal]
  - Thrombosis [Unknown]
  - Hemiplegia [Unknown]
  - Cardiac arrest [Fatal]
  - Impaired work ability [Unknown]

NARRATIVE: CASE EVENT DATE: 20140220
